FAERS Safety Report 5286877-9 (Version None)
Quarter: 2007Q1

REPORT INFORMATION
  Report Type: 
  Country: None (occurrence: None)
  Receive Date: 20070329
  Receipt Date: 20070319
  Transmission Date: 20070707
  Serious: Yes (Hospitalization)
  Sender: FDA-Public Use
  Company Number: 2007-01279

PATIENT
  Age: 93 Year
  Sex: Female

DRUGS (6)
  1. TRAZODONE AND HYDROCHLORIDE (WATSON LABORATORIES) (TRAZODONE AN HYDROC [Suspect]
     Indication: SLEEP DISORDER
     Dosage: 50 MG, QHS, ORAL
     Route: 048
     Dates: start: 19970101
  2. HYDROCHLOROTHIAZIDE [Suspect]
     Indication: HYPERTENSION
     Dosage: ORAL
     Route: 048
  3. DURAGESIC-100 [Concomitant]
  4. INSULIN [Concomitant]
  5. CHOLESTEROL LOWERING DRUG (UNSPECIFIED) [Concomitant]
  6. BUFFERIN [Concomitant]

REACTIONS (1)
  - ELECTROLYTE IMBALANCE [None]
